FAERS Safety Report 16691637 (Version 2)
Quarter: 2019Q3

REPORT INFORMATION
  Report Type: Spontaneous
  Country: AU (occurrence: AU)
  Receive Date: 20190812
  Receipt Date: 20190815
  Transmission Date: 20191004
  Serious: Yes (Death, Hospitalization)
  Sender: FDA-Public Use
  Company Number: AU-ACTELION-A-CH2019-194149

PATIENT
  Age: 43 Year
  Sex: Female

DRUGS (20)
  1. VENTAVIS [Suspect]
     Active Substance: ILOPROST
     Indication: PULMONARY ARTERIAL HYPERTENSION
     Dosage: 5 MCG, Q4HRS
     Route: 055
     Dates: start: 20120124, end: 20190801
  2. ALLOPURINOL. [Concomitant]
     Active Substance: ALLOPURINOL
     Dosage: 200 MG, QD
     Dates: end: 20190731
  3. OMEPRAZOLE. [Concomitant]
     Active Substance: OMEPRAZOLE
     Dosage: 20 MG, BID
     Dates: end: 20190731
  4. SPIRONOLACTONE. [Concomitant]
     Active Substance: SPIRONOLACTONE
     Dosage: 25 MG, BID
     Dates: end: 20190731
  5. SILDENAFIL. [Suspect]
     Active Substance: SILDENAFIL
     Indication: PULMONARY ARTERIAL HYPERTENSION
     Dosage: 50 MG, TID
     Route: 048
     Dates: start: 20091008, end: 20190801
  6. PARACETAMOL [Concomitant]
     Active Substance: ACETAMINOPHEN
     Dosage: 2 DF, PRN
     Dates: end: 20190731
  7. SALBUTAMOL [Concomitant]
     Active Substance: ALBUTEROL
     Dosage: UNK, PRN
     Route: 055
     Dates: end: 20190731
  8. AMIODARONE [Concomitant]
     Active Substance: AMIODARONE
     Dosage: 200 MG, QD
     Dates: end: 20190731
  9. AMOXICILLIN. [Concomitant]
     Active Substance: AMOXICILLIN
     Indication: SINUSITIS
     Dosage: 500 MG, PRN
     Dates: end: 20190731
  10. TEMAZEPAM. [Concomitant]
     Active Substance: TEMAZEPAM
     Dosage: 1 DF, PRN
     Dates: end: 20190731
  11. CODEINE PHOSPHATE HEMIHYDRATE W/PARACETAMOL [Concomitant]
     Active Substance: ACETAMINOPHEN\CODEINE PHOSPHATE
     Dosage: 2 DF, PRN
     Dates: end: 20190731
  12. OPSUMIT [Suspect]
     Active Substance: MACITENTAN
     Indication: PULMONARY ARTERIAL HYPERTENSION
     Dosage: 10 MG, QD
     Route: 048
     Dates: start: 20190125, end: 20190801
  13. VISCOTEARS [Concomitant]
     Active Substance: CARBOMER
     Dosage: UNK
     Dates: end: 20190731
  14. METHOTREXATE (METHOTREXATE SODIUM) [Concomitant]
     Active Substance: METHOTREXATE SODIUM
     Dosage: 10 MG, Q1WEEK
     Dates: end: 20190731
  15. ELIQUIS [Suspect]
     Active Substance: APIXABAN
     Indication: PRODUCT USED FOR UNKNOWN INDICATION
     Dosage: 5 MG, BID
     Route: 048
     Dates: end: 20190801
  16. VOLTAREN [Concomitant]
     Active Substance: DICLOFENAC SODIUM
     Dosage: UNK, PER MIN
     Route: 061
     Dates: end: 20190731
  17. SERETIDE [Concomitant]
     Active Substance: FLUTICASONE PROPIONATE\SALMETEROL XINAFOATE
     Dosage: UNK, BID
     Route: 055
     Dates: end: 20190731
  18. SERETIDE [Concomitant]
     Active Substance: FLUTICASONE PROPIONATE\SALMETEROL XINAFOATE
     Dosage: UNK, PRN
     Route: 055
  19. FUROSEMIDE. [Concomitant]
     Active Substance: FUROSEMIDE
     Dosage: 120 MG, QD
     Dates: end: 20190731
  20. FEFOL [Concomitant]
     Active Substance: FERROUS SULFATE\FOLIC ACID
     Dosage: 1 DF, QD
     Dates: end: 20190731

REACTIONS (13)
  - Meningoencephalitis viral [Unknown]
  - Subdural haematoma [Fatal]
  - Seizure [Fatal]
  - Hepatic function abnormal [Unknown]
  - Rheumatoid arthritis [Unknown]
  - Hyponatraemia [Unknown]
  - Coma scale abnormal [Fatal]
  - Atrial flutter [Unknown]
  - Lower respiratory tract infection [Unknown]
  - Multiple organ dysfunction syndrome [Fatal]
  - Somnolence [Unknown]
  - Peptic ulcer [Unknown]
  - Cardiac dysfunction [Unknown]

NARRATIVE: CASE EVENT DATE: 201907
